FAERS Safety Report 4450259-X (Version None)
Quarter: 2004Q3

REPORT INFORMATION
  Report Type: 
  Country: None (occurrence: None)
  Receive Date: 20040914
  Receipt Date: 20040909
  Transmission Date: 20050211
  Serious: Yes (Death, Life-Threatening, Hospitalization)
  Sender: FDA-Public Use
  Company Number: 04USA0208

PATIENT
  Age: 72 Year
  Sex: Male

DRUGS (4)
  1. TIROFIBAN HYDROCHLORIDE [Suspect]
     Indication: ACUTE CORONARY SYNDROME
     Dosage: IV
     Route: 042
     Dates: start: 20040721, end: 20040721
  2. CLOPIDOGREL BISULFATE [Concomitant]
  3. ACETYLSALICYLIC ACID [Concomitant]
  4. HEPARIN-FRACTION, SODIUM SALT [Concomitant]

REACTIONS (3)
  - ACUTE MYOCARDIAL INFARCTION [None]
  - CARDIOGENIC SHOCK [None]
  - HAEMORRHAGE [None]
